FAERS Safety Report 10221146 (Version 1)
Quarter: 2014Q2

REPORT INFORMATION
  Report Type: Spontaneous
  Country: US (occurrence: None)
  Receive Date: 20140604
  Receipt Date: 20140604
  Transmission Date: 20141212
  Serious: Yes (Other)
  Sender: FDA-Public Use
  Company Number: 2014AP003186

PATIENT
  Age: 85 Year
  Sex: 0

DRUGS (1)
  1. ANASTROZOLE [Suspect]
     Indication: BREAST CANCER

REACTIONS (2)
  - Breast cancer [None]
  - Breast cancer recurrent [None]
